FAERS Safety Report 4316131-0 (Version None)
Quarter: 2004Q1

REPORT INFORMATION
  Report Type: 
  Country: None (occurrence: None)
  Receive Date: 20040312
  Receipt Date: 20030509
  Transmission Date: 20041129
  Serious: Yes (Other)
  Sender: FDA-Public Use
  Company Number: PHHO2003US06564

PATIENT
  Age: 52 Year
  Sex: Male
  Weight: 75 kg

DRUGS (1)
  1. GLEEVEC [Suspect]
     Indication: MUCOEPIDERMOID CARCINOMA
     Dosage: 300 MG, BID
     Route: 048
     Dates: start: 20030108, end: 20030430

REACTIONS (3)
  - ARTERIOVENOUS MALFORMATION [None]
  - HAEMATEMESIS [None]
  - HAEMOGLOBIN DECREASED [None]
